FAERS Safety Report 7742439-2 (Version None)
Quarter: 2011Q3

REPORT INFORMATION
  Report Type: 
  Country: None (occurrence: None)
  Receive Date: 20110907
  Receipt Date: 20110907
  Transmission Date: 20111222
  Serious: Yes (Hospitalization)
  Sender: FDA-Public Use
  Company Number: None

PATIENT
  Sex: Female
  Weight: 30.3 kg

DRUGS (1)
  1. NUTROPIN [Suspect]
     Indication: GROWTH RETARDATION
     Dosage: 1.45MG DAILY SUBCUTANEOUS
     Route: 058
     Dates: start: 20110111

REACTIONS (2)
  - OVARIAN CYST [None]
  - OVARIAN TORSION [None]
